FAERS Safety Report 12436213 (Version 1)
Quarter: 2016Q2

REPORT INFORMATION
  Report Type: Spontaneous
  Country: DK (occurrence: DK)
  Receive Date: 20160605
  Receipt Date: 20160605
  Transmission Date: 20160815
  Serious: Yes (Life-Threatening, Hospitalization)
  Sender: FDA-Public Use
  Company Number: DK-TEVA-663938ACC

PATIENT
  Age: 81 Year
  Sex: Female

DRUGS (17)
  1. FURIX [Concomitant]
     Active Substance: FUROSEMIDE
     Indication: DIURETIC THERAPY
  2. MEDILAX [Concomitant]
     Indication: CONSTIPATION
  3. SPIRIVA [Concomitant]
     Active Substance: TIOTROPIUM BROMIDE MONOHYDRATE
     Indication: CHRONIC OBSTRUCTIVE PULMONARY DISEASE
  4. MOVICOL [Concomitant]
     Active Substance: POLYETHYLENE GLYCOL 3350\POTASSIUM CHLORIDE\SODIUM BICARBONATE\SODIUM CHLORIDE
     Indication: CONSTIPATION
     Dosage: GIVEN WHEN NEEDED
  5. PAMOL [Concomitant]
     Active Substance: ACETAMINOPHEN
     Indication: PAIN
     Dosage: GIVEN WHEN NEEDED
  6. MAGNESIUMOXID [Concomitant]
     Indication: CONSTIPATION
  7. MIRTAZAPIN [Concomitant]
     Active Substance: MIRTAZAPINE
     Indication: DEPRESSION
  8. BUVENTOL EASYHALER [Concomitant]
     Active Substance: ALBUTEROL SULFATE
     Indication: CHRONIC OBSTRUCTIVE PULMONARY DISEASE
     Dosage: GIVEN WHEN NEEDED
  9. OXAPAX [Suspect]
     Active Substance: OXAZEPAM
     Indication: ANXIETY
     Dosage: DOSE : NOT MORE THAN 7.5 MG 3 TIMES A DAY IF NECESSARY. STRENGTH: 15 MG
     Route: 048
     Dates: start: 20160331, end: 20160503
  10. KALEORID [Concomitant]
     Active Substance: POTASSIUM CHLORIDE
     Indication: MINERAL SUPPLEMENTATION
  11. MALFIN [Suspect]
     Active Substance: MORPHINE SULFATE
     Indication: MUSCULOSKELETAL PAIN
     Dosage: DOSE: 70 MG/DAY, STRENGTH: ?
     Route: 048
     Dates: start: 201602, end: 201605
  12. DULCOLAX NOS [Concomitant]
     Active Substance: BISACODYL OR DOCUSATE SODIUM
     Indication: CONSTIPATION
     Dosage: GIVEN WHEN NEEDED
  13. THEO-DUR [Concomitant]
     Active Substance: THEOPHYLLINE ANHYDROUS
     Indication: ASTHMA
  14. DOMPERIDON [Concomitant]
     Active Substance: DOMPERIDONE
     Indication: NAUSEA
  15. PANTOPRAZOLE [Concomitant]
     Active Substance: PANTOPRAZOLE SODIUM
     Indication: OESOPHAGITIS
     Dates: start: 201603
  16. OXYNORM [Suspect]
     Active Substance: OXYCODONE HYDROCHLORIDE
     Indication: MUSCULOSKELETAL PAIN
     Dosage: DOSE : 5 MG NOT MORE THAN 3 TIMES DAILY AS NEEDED
     Route: 048
     Dates: end: 201605
  17. SERETIDE [Concomitant]
     Active Substance: FLUTICASONE PROPIONATE\SALMETEROL XINAFOATE
     Indication: CHRONIC OBSTRUCTIVE PULMONARY DISEASE

REACTIONS (2)
  - Cyanosis [Recovered/Resolved]
  - Depressed level of consciousness [Recovered/Resolved]

NARRATIVE: CASE EVENT DATE: 20160503
